FAERS Safety Report 24737691 (Version 1)
Quarter: 2024Q4

REPORT INFORMATION
  Report Type: Spontaneous
  Country: ES (occurrence: ES)
  Receive Date: 20241216
  Receipt Date: 20241216
  Transmission Date: 20250115
  Serious: Yes (Hospitalization, Disabling)
  Sender: SAMSUNG BIOEPIS
  Company Number: None

PATIENT
  Sex: Male
  Weight: 70 kg

DRUGS (2)
  1. INFLIXIMAB [Suspect]
     Active Substance: INFLIXIMAB
     Indication: Spondyloarthropathy
     Dosage: HOSPITAL DIA
     Route: 042
     Dates: start: 20181008, end: 20200116
  2. HYABAK [Concomitant]
     Indication: Dry eye
     Dosage: PROTECTOR 0,15% SOLU OFTALM 10 ML
     Route: 047
     Dates: start: 20160915

REACTIONS (2)
  - Chondromatosis [Recovered/Resolved with Sequelae]
  - Medication error [Recovered/Resolved with Sequelae]

NARRATIVE: CASE EVENT DATE: 20190710
